FAERS Safety Report 6642217-1 (Version None)
Quarter: 2010Q1

REPORT INFORMATION
  Report Type: 
  Country: None (occurrence: None)
  Receive Date: 20100319
  Receipt Date: 20100315
  Transmission Date: 20100710
  Serious: Yes (Disabling)
  Sender: FDA-Public Use
  Company Number: US-ELI_LILLY_AND_COMPANY-US201003004186

PATIENT
  Sex: Female

DRUGS (4)
  1. HUMALOG [Suspect]
     Indication: DIABETES MELLITUS
     Dosage: 20 U, EACH MORNING
     Dates: start: 19970101
  2. HUMALOG [Suspect]
     Dosage: 20 U, OTHER
     Dates: start: 19970101
  3. HUMALOG [Suspect]
     Dosage: 20 U, EACH EVENING
     Dates: start: 19970101
  4. LANTUS [Concomitant]
     Dosage: 50 U, EACH EVENING
     Dates: start: 20070101

REACTIONS (2)
  - BLINDNESS [None]
  - BLOOD GLUCOSE DECREASED [None]
